FAERS Safety Report 4767643-7 (Version None)
Quarter: 2005Q3

REPORT INFORMATION
  Report Type: 
  Country: None (occurrence: None)
  Receive Date: 20050912
  Receipt Date: 20050826
  Transmission Date: 20060218
  Serious: Yes (Other)
  Sender: FDA-Public Use
  Company Number: PAR_0183_2005

PATIENT
  Age: 50 Year
  Sex: Female
  Weight: 74 kg

DRUGS (2)
  1. CAPOTEN [Suspect]
     Dosage: 100 MG QDAY PO
     Route: 048
     Dates: start: 19930101
  2. SUSTRATE [Suspect]
     Dosage: 40 MG QDAY PO
     Route: 048
     Dates: start: 19930101

REACTIONS (2)
  - BLINDNESS TRANSIENT [None]
  - CEREBROVASCULAR ACCIDENT [None]
